FAERS Safety Report 10450489 (Version 1)
Quarter: 2014Q3

REPORT INFORMATION
  Report Type: Spontaneous
  Country: US (occurrence: None)
  Receive Date: 20140911
  Receipt Date: 20140911
  Transmission Date: 20150326
  Serious: Yes (Hospitalization)
  Sender: FDA-Public Use
  Company Number: None

PATIENT
  Age: 58 Year
  Sex: Male
  Weight: 99 kg

DRUGS (2)
  1. PEMETREXED [Suspect]
     Active Substance: PEMETREXED
  2. BEVACIZUMAB [Suspect]
     Active Substance: BEVACIZUMAB

REACTIONS (9)
  - Rhabdomyolysis [None]
  - Febrile neutropenia [None]
  - Depressed level of consciousness [None]
  - Haematoma [None]
  - Pancytopenia [None]
  - Bacterial infection [None]
  - Sepsis [None]
  - Renal failure acute [None]
  - Dehydration [None]

NARRATIVE: CASE EVENT DATE: 20140909
